FAERS Safety Report 5511991-X (Version None)
Quarter: 2007Q4

REPORT INFORMATION
  Report Type: 
  Country: None (occurrence: None)
  Receive Date: 20071109
  Receipt Date: 20071102
  Transmission Date: 20080405
  Serious: Yes (Hospitalization)
  Sender: FDA-Public Use
  Company Number: JP-MERCK-0710USA04993

PATIENT
  Age: 83 Year
  Sex: Female

DRUGS (8)
  1. FOSAMAX [Suspect]
     Indication: OSTEOPOROSIS
     Route: 048
     Dates: start: 20071019, end: 20071019
  2. METHYCOBAL [Concomitant]
     Indication: HYPERLIPIDAEMIA
     Route: 048
  3. ALFAROL [Concomitant]
     Indication: OSTEOPOROSIS
     Route: 048
  4. AMLODIN [Concomitant]
     Indication: HYPERTENSION
     Route: 048
  5. PRAVASTATIN [Concomitant]
     Indication: HYPERLIPIDAEMIA
     Route: 048
  6. ITOROL [Concomitant]
     Route: 048
  7. DOGMATYL [Concomitant]
     Route: 048
  8. SIGMART [Concomitant]
     Route: 048

REACTIONS (1)
  - GENERALISED OEDEMA [None]
